FAERS Safety Report 21787407 (Version 7)
Quarter: 2023Q4

REPORT INFORMATION
  Report Type: Report from Study
  Country: JP (occurrence: JP)
  Receive Date: 20221228
  Receipt Date: 20231006
  Transmission Date: 20240109
  Serious: Yes (Death, Hospitalization)
  Sender: FDA-Public Use
  Company Number: JP-ARGENX-2022-ARGX-JP002805

PATIENT
  Age: 50 Year
  Sex: Female
  Weight: 34.1 kg

DRUGS (6)
  1. VYVGART [Suspect]
     Active Substance: EFGARTIGIMOD ALFA-FCAB
     Indication: Myasthenia gravis
     Dosage: 400 MG
     Route: 041
     Dates: start: 20220920, end: 20221011
  2. VYVGART [Suspect]
     Active Substance: EFGARTIGIMOD ALFA-FCAB
     Dosage: 340 MG
     Route: 041
     Dates: start: 20230406, end: 20230427
  3. PREDONINE [Concomitant]
     Active Substance: PREDNISOLONE
     Indication: Myasthenia gravis
     Dosage: 5 MG
     Route: 048
     Dates: start: 20200827, end: 20230512
  4. PROGRAF [Concomitant]
     Active Substance: TACROLIMUS
     Indication: Myasthenia gravis
     Dosage: 3 MG
     Route: 048
     Dates: start: 20200827, end: 20230512
  5. IMURAN [Concomitant]
     Active Substance: AZATHIOPRINE
     Indication: Myasthenia gravis
     Dosage: 50 MG
     Route: 048
     Dates: start: 20230318, end: 20230512
  6. RISPERDAL [Concomitant]
     Active Substance: RISPERIDONE
     Indication: Product used for unknown indication
     Dosage: 3 MG
     Route: 048
     Dates: start: 20200827, end: 20230512

REACTIONS (3)
  - Symptom recurrence [Fatal]
  - Symptom recurrence [Recovering/Resolving]
  - Pneumonia aspiration [Recovering/Resolving]

NARRATIVE: CASE EVENT DATE: 20221011
